FAERS Safety Report 9742460 (Version 1)
Quarter: 2013Q4

REPORT INFORMATION
  Report Type: Spontaneous
  Country: US (occurrence: US)
  Receive Date: 20131210
  Receipt Date: 20131210
  Transmission Date: 20140711
  Serious: Yes (Hospitalization)
  Sender: FDA-Public Use
  Company Number: US-AMGEN-USASP2013085364

PATIENT
  Age: 60 Year
  Sex: Male

DRUGS (3)
  1. PROLIA [Suspect]
     Indication: PRODUCT USED FOR UNKNOWN INDICATION
     Dosage: UNK UNK, Q6MO
     Route: 065
  2. ELIGARD [Concomitant]
     Indication: PROSTATE CANCER
     Route: 065
  3. LEUPROLIDE                         /00726901/ [Concomitant]
     Indication: PROSTATE CANCER
     Route: 065

REACTIONS (3)
  - Guillain-Barre syndrome [Unknown]
  - Asthenia [Unknown]
  - Upper respiratory tract infection [Unknown]
